FAERS Safety Report 7628288-4 (Version None)
Quarter: 2011Q3

REPORT INFORMATION
  Report Type: 
  Country: None (occurrence: None)
  Receive Date: 20110722
  Receipt Date: 20110714
  Transmission Date: 20111222
  Serious: Yes (Hospitalization)
  Sender: FDA-Public Use
  Company Number: US-JNJFOC-20110706382

PATIENT
  Sex: Female
  Weight: 82.56 kg

DRUGS (9)
  1. FOLIC ACID [Concomitant]
     Indication: VITAMIN SUPPLEMENTATION
     Route: 048
  2. METOPROLOL TARTRATE [Concomitant]
     Indication: CARDIAC DISORDER
     Route: 048
  3. RANEXA [Concomitant]
     Indication: CARDIAC DISORDER
     Route: 048
  4. FENTANYL-100 [Suspect]
     Indication: PAIN
     Route: 062
     Dates: start: 20110501, end: 20110601
  5. DURAGESIC-100 [Suspect]
     Indication: PAIN
     Route: 062
     Dates: start: 20110601
  6. LASIX [Concomitant]
     Indication: FLUID REPLACEMENT
     Route: 048
  7. ISOSORBIDE DINITRATE [Concomitant]
     Indication: CARDIAC DISORDER
     Route: 048
  8. LORAZEPAM [Concomitant]
     Indication: DEPRESSION
     Route: 048
  9. NEXIUM [Concomitant]
     Indication: GASTROOESOPHAGEAL REFLUX DISEASE
     Route: 048

REACTIONS (8)
  - DRUG PRESCRIBING ERROR [None]
  - DRUG DOSE OMISSION [None]
  - PRODUCT ADHESION ISSUE [None]
  - DRUG ADMINISTERED AT INAPPROPRIATE SITE [None]
  - INAPPROPRIATE SCHEDULE OF DRUG ADMINISTRATION [None]
  - ANEURYSM [None]
  - TRANSIENT ISCHAEMIC ATTACK [None]
  - PAIN [None]
